FAERS Safety Report 9394414 (Version 2)
Quarter: 2013Q3

REPORT INFORMATION
  Report Type: Report from Study
  Country: CA (occurrence: CA)
  Receive Date: 20130711
  Receipt Date: 20130717
  Transmission Date: 20140515
  Serious: Yes (Other)
  Sender: FDA-Public Use
  Company Number: CA-JNJFOC-20130701479

PATIENT
  Sex: Female
  Weight: 57.8 kg

DRUGS (2)
  1. REMICADE [Suspect]
     Indication: CROHN^S DISEASE
     Dosage: NOT INITIATED
     Route: 042
     Dates: start: 20130627, end: 20130627
  2. REMICADE [Suspect]
     Indication: CROHN^S DISEASE
     Dosage: OVER 2 HOURS
     Route: 042
     Dates: start: 20120820

REACTIONS (2)
  - Thrombosis [Unknown]
  - Infection [Unknown]
